FAERS Safety Report 5922679-5 (Version None)
Quarter: 2008Q4

REPORT INFORMATION
  Report Type: 
  Country: None (occurrence: None)
  Receive Date: 20081017
  Receipt Date: 20081014
  Transmission Date: 20090506
  Serious: Yes (Other)
  Sender: FDA-Public Use
  Company Number: US-ASTRAZENECA-2008UW22646

PATIENT
  Age: 84 Year
  Sex: Female

DRUGS (2)
  1. CRESTOR [Suspect]
     Indication: HYPERCHOLESTEROLAEMIA
     Route: 048
     Dates: end: 20070101
  2. FOSAMAX [Suspect]
     Dates: end: 20070101

REACTIONS (4)
  - BIOPSY [None]
  - MUSCLE SPASMS [None]
  - MYALGIA [None]
  - RASH [None]
